FAERS Safety Report 16164477 (Version 1)
Quarter: 2019Q2

REPORT INFORMATION
  Report Type: Spontaneous
  Country: DE (occurrence: DE)
  Receive Date: 20190405
  Receipt Date: 20190405
  Transmission Date: 20190711
  Serious: Yes (Other)
  Sender: FDA-Public Use
  Company Number: DE-TORRENT-00013704

PATIENT
  Age: 60 Year
  Sex: Male

DRUGS (10)
  1. BRIVARACETAM [Suspect]
     Active Substance: BRIVARACETAM
     Indication: POST-ANOXIC MYOCLONUS
     Dosage: MDD 150 MG
  2. ESLICARBAZEPINE [Suspect]
     Active Substance: ESLICARBAZEPINE
     Indication: POST-ANOXIC MYOCLONUS
     Dosage: UNKNOWN
  3. LEVETIRACETAM. [Suspect]
     Active Substance: LEVETIRACETAM
     Indication: POST-ANOXIC MYOCLONUS
     Dosage: (MAXIMUM DAILY DOSE [MDD] 1500 MG
  4. CLONAZEPAM. [Suspect]
     Active Substance: CLONAZEPAM
     Indication: POST-ANOXIC MYOCLONUS
     Dosage: UP TO 1.5 MG/D
  5. LAMOTRIGINE. [Suspect]
     Active Substance: LAMOTRIGINE
     Indication: POST-ANOXIC MYOCLONUS
     Dosage: UNKNOWN
  6. TOPIRAMATE. [Suspect]
     Active Substance: TOPIRAMATE
     Indication: POST-ANOXIC MYOCLONUS
     Dosage: UNKNOWN
  7. GABAPENTIN. [Suspect]
     Active Substance: GABAPENTIN
     Indication: POST-ANOXIC MYOCLONUS
     Dosage: UNKNOWN
  8. VALPROIC ACID. [Suspect]
     Active Substance: VALPROIC ACID
     Indication: POST-ANOXIC MYOCLONUS
     Dosage: UNKNOWN
  9. ZONISAMIDE. [Suspect]
     Active Substance: ZONISAMIDE
     Indication: POST-ANOXIC MYOCLONUS
     Dosage: UNKNOWN
  10. PREGABALIN. [Suspect]
     Active Substance: PREGABALIN
     Indication: POST-ANOXIC MYOCLONUS
     Dosage: UNKNOWN

REACTIONS (9)
  - Salivary hypersecretion [Unknown]
  - Rash [Unknown]
  - Disorganised speech [Unknown]
  - Parkinsonism [Unknown]
  - Nausea [Unknown]
  - Vomiting [Unknown]
  - Drug ineffective [Unknown]
  - Dystonia [Unknown]
  - Fatigue [Unknown]
